FAERS Safety Report 8811173 (Version 1)
Quarter: 2012Q4

REPORT INFORMATION
  Report Type: 
  Country: US (occurrence: US)
  Receive Date: 20120927
  Receipt Date: 20120927
  Transmission Date: 20130627
  Serious: Yes (Hospitalization)
  Sender: FDA-Public Use
  Company Number: PHEH2012US018411

PATIENT
  Sex: Female

DRUGS (1)
  1. EXJADE [Suspect]
     Indication: HAEMOCHROMATOSIS
     Dosage: 500 mg, QD
     Route: 048

REACTIONS (4)
  - Infection [Unknown]
  - Abdominal abscess [Unknown]
  - Gastrointestinal anastomotic leak [Unknown]
  - Intervertebral disc injury [Unknown]
